FAERS Safety Report 6360449-7 (Version None)
Quarter: 2009Q3

REPORT INFORMATION
  Report Type: 
  Country: None (occurrence: None)
  Receive Date: 20090917
  Receipt Date: 20090914
  Transmission Date: 20100115
  Serious: Yes (Other)
  Sender: FDA-Public Use
  Company Number: US-GENENTECH-289825

PATIENT
  Sex: Male
  Weight: 63.96 kg

DRUGS (20)
  1. PLACEBO [Suspect]
     Indication: COLORECTAL CANCER METASTATIC
     Dosage: 150 UNK, QD
     Route: 048
     Dates: start: 20080803, end: 20090806
  2. AVASTIN [Suspect]
     Indication: COLORECTAL CANCER METASTATIC
     Dosage: 5 MG/KG, Q2W
     Dates: start: 20080801, end: 20090828
  3. FOLINIC ACID [Suspect]
     Indication: COLORECTAL CANCER METASTATIC
     Dosage: 400 MG/M2, Q2W
     Dates: start: 20080801, end: 20090828
  4. FLUOROURACIL [Suspect]
     Indication: COLORECTAL CANCER METASTATIC
     Dosage: 400 MG/M2, Q2W
     Route: 040
     Dates: start: 20080801, end: 20090828
  5. FLUOROURACIL [Suspect]
     Dosage: 2400 MG/M2, UNK
     Route: 041
     Dates: start: 20080801
  6. IRINOTECAN HCL [Suspect]
     Indication: COLORECTAL CANCER METASTATIC
     Dosage: 180 MG/M2, Q2W
     Dates: start: 20080801, end: 20090828
  7. COGENTIN [Concomitant]
     Indication: DRUG USE FOR UNKNOWN INDICATION
  8. ATROPINE [Concomitant]
     Indication: DRUG USE FOR UNKNOWN INDICATION
  9. REGLAN [Concomitant]
     Indication: DRUG USE FOR UNKNOWN INDICATION
  10. ZOFRAN [Concomitant]
     Indication: DRUG USE FOR UNKNOWN INDICATION
  11. DEXAMETHASONE [Concomitant]
     Indication: DRUG USE FOR UNKNOWN INDICATION
  12. SENNA S [Concomitant]
     Indication: DRUG USE FOR UNKNOWN INDICATION
  13. CENTRUM SILVER [Concomitant]
     Indication: DRUG USE FOR UNKNOWN INDICATION
  14. ASPIRIN [Concomitant]
     Indication: DRUG USE FOR UNKNOWN INDICATION
  15. DILTIAZEM [Concomitant]
     Indication: DRUG USE FOR UNKNOWN INDICATION
  16. BENADRYL [Concomitant]
     Indication: DRUG USE FOR UNKNOWN INDICATION
  17. DIOVAN [Concomitant]
     Indication: DRUG USE FOR UNKNOWN INDICATION
  18. LEVOTHYROXINE SODIUM [Concomitant]
     Indication: DRUG USE FOR UNKNOWN INDICATION
  19. OS-CAL [Concomitant]
     Indication: DRUG USE FOR UNKNOWN INDICATION
  20. COUMADIN [Concomitant]
     Indication: DRUG USE FOR UNKNOWN INDICATION

REACTIONS (1)
  - PSYCHOTIC DISORDER [None]
